FAERS Safety Report 7853020-9 (Version None)
Quarter: 2011Q3

REPORT INFORMATION
  Report Type: 
  Country: None (occurrence: None)
  Receive Date: 20110914
  Receipt Date: 20110505
  Transmission Date: 20111222
  Serious: Yes (Hospitalization)
  Sender: FDA-Public Use
  Company Number: 1000020717

PATIENT
  Age: 18 Year
  Sex: Female

DRUGS (3)
  1. CELEXA [Suspect]
     Dosage: 10 MG (10 MG,1 IN 1 D),ORAL ; 20 MG (20 MG,1 IN 1 D),ORAL
     Route: 048
     Dates: start: 20110401
  2. CELEXA [Suspect]
     Dosage: 10 MG (10 MG,1 IN 1 D),ORAL ; 20 MG (20 MG,1 IN 1 D),ORAL
     Route: 048
     Dates: end: 20110401
  3. ADDERALL (AMPHETAMINE, DEXTROAMPHETAMINE MIXED SALTS) (TABLETS) (AMPHE [Concomitant]

REACTIONS (1)
  - MYOCARDIAL INFARCTION [None]
